FAERS Safety Report 4742504-8 (Version None)
Quarter: 2005Q3

REPORT INFORMATION
  Report Type: 
  Country: None (occurrence: None)
  Receive Date: 20050808
  Receipt Date: 20050803
  Transmission Date: 20060218
  Serious: Yes (Hospitalization, Disabling, Other)
  Sender: FDA-Public Use
  Company Number: USA0507103623

PATIENT
  Age: 39 Year
  Sex: Male

DRUGS (4)
  1. HUMULIN R [Suspect]
     Indication: DIABETES MELLITUS INSULIN-DEPENDENT
  2. HUMULIN L [Suspect]
     Indication: DIABETES MELLITUS INSULIN-DEPENDENT
  3. INSULIN [Suspect]
     Indication: DIABETES MELLITUS INSULIN-DEPENDENT
     Dates: start: 19670101
  4. ASPIRIN [Concomitant]

REACTIONS (14)
  - ARTHRITIS [None]
  - BLOOD GLUCOSE INCREASED [None]
  - BONE PAIN [None]
  - DIABETIC NEUROPATHY [None]
  - EYE DISORDER [None]
  - IMPAIRED WORK ABILITY [None]
  - MACULAR DEGENERATION [None]
  - NON-HODGKIN'S LYMPHOMA [None]
  - PHOTOSENSITIVITY REACTION [None]
  - POST PROCEDURAL COMPLICATION [None]
  - RHEUMATOID ARTHRITIS [None]
  - SPINAL DISORDER [None]
  - TONSIL CANCER [None]
  - URTICARIA [None]
